FAERS Safety Report 7617563-5 (Version None)
Quarter: 2011Q3

REPORT INFORMATION
  Report Type: 
  Country: None (occurrence: None)
  Receive Date: 20110718
  Receipt Date: 20110705
  Transmission Date: 20111222
  Serious: Yes (Hospitalization)
  Sender: FDA-Public Use
  Company Number: FR-JNJFOC-20110704683

PATIENT
  Sex: Female

DRUGS (5)
  1. NEXIUM [Concomitant]
     Indication: GASTROOESOPHAGEAL REFLUX DISEASE
     Route: 065
  2. FLURBIPROFEN [Concomitant]
     Indication: PRODUCT USED FOR UNKNOWN INDICATION
     Route: 065
  3. TRAMADOL HCL [Suspect]
     Indication: OSTEOARTHRITIS
     Route: 048
  4. NEXEN [Concomitant]
     Indication: OSTEOARTHRITIS
     Route: 065
  5. ALDACTONE [Concomitant]
     Indication: HYPERTENSION
     Route: 065

REACTIONS (1)
  - PANCREATITIS ACUTE [None]
